FAERS Safety Report 23610826 (Version 2)
Quarter: 2024Q1

REPORT INFORMATION
  Report Type: Report from Study
  Country: CA (occurrence: CA)
  Receive Date: 20240308
  Receipt Date: 20240328
  Transmission Date: 20240409
  Serious: Yes (Hospitalization)
  Sender: FDA-Public Use
  Company Number: CA-JNJFOC-20230867898

PATIENT
  Age: 29 Year
  Sex: Female

DRUGS (3)
  1. REMICADE [Suspect]
     Active Substance: INFLIXIMAB
     Indication: Crohn^s disease
     Route: 041
     Dates: start: 20150818
  2. REMICADE [Suspect]
     Active Substance: INFLIXIMAB
     Dosage: EXP.AL.2026
     Route: 041
     Dates: start: 20150818
  3. TOZINAMERAN [Concomitant]
     Active Substance: TOZINAMERAN
     Indication: COVID-19 prophylaxis
     Dosage: HAD 2 VACCINES AND 1 BOOSTER IN THE YEAR 2022
     Route: 065

REACTIONS (5)
  - Pre-eclampsia [Not Recovered/Not Resolved]
  - SARS-CoV-2 test positive [Recovered/Resolved]
  - Exposure during pregnancy [Recovered/Resolved]
  - Oropharyngeal pain [Unknown]
  - Rhinorrhoea [Unknown]

NARRATIVE: CASE EVENT DATE: 20230601
